FAERS Safety Report 11344098 (Version 2)
Quarter: 2015Q3

REPORT INFORMATION
  Report Type: Spontaneous
  Country: FR (occurrence: FR)
  Receive Date: 20150806
  Receipt Date: 20150814
  Transmission Date: 20151125
  Serious: Yes (Hospitalization, Other)
  Sender: FDA-Public Use
  Company Number: FR-WATSON-2015-16232

PATIENT
  Age: 24 Year
  Sex: Female

DRUGS (1)
  1. LEVONORGESTREL-ETHINYLESTRADIOL (UNKNOWN) [Suspect]
     Active Substance: ETHINYL ESTRADIOL\LEVONORGESTREL
     Indication: ORAL CONTRACEPTION
     Dosage: 200/400 MCG
     Route: 048

REACTIONS (1)
  - Portal vein thrombosis [Recovered/Resolved]
